FAERS Safety Report 13926125 (Version 1)
Quarter: 2017Q3

REPORT INFORMATION
  Report Type: Spontaneous
  Country: US (occurrence: US)
  Receive Date: 20170831
  Receipt Date: 20170831
  Transmission Date: 20171127
  Serious: Yes (Hospitalization)
  Sender: FDA-Public Use
  Company Number: US-PFIZER INC-2017369580

PATIENT
  Age: 53 Year
  Sex: Female

DRUGS (7)
  1. SILDENAFIL CITRATE. [Suspect]
     Active Substance: SILDENAFIL CITRATE
     Dosage: 1 DF, 3X/DAY
  2. REMODULIN [Suspect]
     Active Substance: TREPROSTINIL
     Dosage: 40.1 NG/KG/MIN
     Route: 058
     Dates: start: 20170617
  3. SILDENAFIL CITRATE. [Suspect]
     Active Substance: SILDENAFIL CITRATE
     Dosage: 80 MG, 3X/DAY
  4. REMODULIN [Suspect]
     Active Substance: TREPROSTINIL
     Dosage: 49.1 NG/KG/MIN
     Route: 058
     Dates: start: 20170728
  5. ADEMPAS [Suspect]
     Active Substance: RIOCIGUAT
     Dosage: UNK
  6. SILDENAFIL CITRATE. [Suspect]
     Active Substance: SILDENAFIL CITRATE
     Dosage: 20 MG, 3X/DAY
  7. REMODULIN [Suspect]
     Active Substance: TREPROSTINIL
     Indication: PULMONARY ARTERIAL HYPERTENSION
     Dosage: 49 NG/KG/MIN
     Route: 058
     Dates: start: 20170214

REACTIONS (5)
  - Syncope [Unknown]
  - Hypotension [Unknown]
  - Gastrointestinal disorder [Unknown]
  - Product use issue [Unknown]
  - Dyspnoea [Unknown]

NARRATIVE: CASE EVENT DATE: 20170713
